FAERS Safety Report 10361298 (Version 3)
Quarter: 2014Q3

REPORT INFORMATION
  Report Type: Report from Study
  Country: BR (occurrence: BR)
  Receive Date: 20140804
  Receipt Date: 20140915
  Transmission Date: 20150326
  Serious: Yes (Hospitalization, Other)
  Sender: FDA-Public Use
  Company Number: BR-ABBVIE-13P-020-1123883-00

PATIENT
  Sex: Female
  Weight: 84.5 kg

DRUGS (6)
  1. HUMIRA [Suspect]
     Active Substance: ADALIMUMAB
     Indication: ANKYLOSING SPONDYLITIS
     Route: 058
     Dates: start: 201203, end: 201212
  2. ANTIBIOTICS [Suspect]
     Active Substance: UNSPECIFIED INGREDIENT
     Indication: INFECTIOUS THYROIDITIS
  3. AAS [Concomitant]
     Active Substance: ASPIRIN
     Indication: CARDIAC DISORDER
     Route: 048
     Dates: start: 20140528
  4. AZATHIOPRINE. [Concomitant]
     Active Substance: AZATHIOPRINE
     Indication: AUTOIMMUNE DISORDER
     Dosage: 1 TABLET IN THE MORNING AND 1 TABLET AT NIGHT
     Route: 048
     Dates: start: 201207
  5. CHLOROQUINE [Concomitant]
     Active Substance: CHLOROQUINE\CHLOROQUINE PHOSPHATE
     Indication: AUTOIMMUNE DISORDER
     Route: 048
     Dates: start: 201207
  6. REUQUINOL [Concomitant]
     Active Substance: HYDROXYCHLOROQUINE SULFATE
     Indication: AUTOIMMUNE DISORDER
     Route: 048
     Dates: start: 2011

REACTIONS (11)
  - Cholelithiasis [Recovered/Resolved]
  - Systemic lupus erythematosus [Unknown]
  - Inflammation [Recovering/Resolving]
  - Infectious thyroiditis [Recovered/Resolved]
  - Drug ineffective [Unknown]
  - Arthralgia [Recovered/Resolved]
  - Uveitis [Recovered/Resolved]
  - Arthritis [Recovering/Resolving]
  - Benign neoplasm of thyroid gland [Recovered/Resolved]
  - Thyroid adenoma [Unknown]
  - Spinal pain [Recovered/Resolved]

NARRATIVE: CASE EVENT DATE: 2012
